FAERS Safety Report 13220264 (Version 4)
Quarter: 2018Q1

REPORT INFORMATION
  Report Type: Report from Study
  Country: US (occurrence: US)
  Receive Date: 20170210
  Receipt Date: 20180223
  Transmission Date: 20180508
  Serious: Yes (Life-Threatening)
  Sender: FDA-Public Use
  Company Number: PHEH2017US003553

PATIENT
  Sex: Female

DRUGS (2)
  1. ENTRESTO [Suspect]
     Active Substance: SACUBITRIL\VALSARTAN
     Indication: CARDIAC FAILURE
     Dosage: LOWER DOSE
     Route: 065
  2. ENTRESTO [Suspect]
     Active Substance: SACUBITRIL\VALSARTAN
     Dosage: 200 MG BID
     Route: 048
     Dates: start: 20161114

REACTIONS (8)
  - Feeling abnormal [Unknown]
  - Oedema peripheral [Unknown]
  - Peripheral coldness [Unknown]
  - Exercise tolerance decreased [Unknown]
  - Fatigue [Unknown]
  - Rash pruritic [Unknown]
  - Rash erythematous [Unknown]
  - Weight decreased [Unknown]
